FAERS Safety Report 19077362 (Version 1)
Quarter: 2021Q1

REPORT INFORMATION
  Report Type: Spontaneous
  Country: IN (occurrence: IN)
  Receive Date: 20210331
  Receipt Date: 20210331
  Transmission Date: 20210420
  Serious: Yes (Other)
  Sender: FDA-Public Use
  Company Number: IN-GLAXOSMITHKLINE-IN2021APC071690

PATIENT
  Age: 6 Year
  Sex: Male

DRUGS (1)
  1. T?BACT [MUPIROCIN] [Suspect]
     Active Substance: MUPIROCIN
     Indication: SKIN LACERATION
     Dosage: UNK, BID
     Route: 061

REACTIONS (2)
  - Pain of skin [Unknown]
  - Skin burning sensation [Unknown]
